FAERS Safety Report 13366820 (Version 1)
Quarter: 2017Q1

REPORT INFORMATION
  Report Type: Spontaneous
  Country: US (occurrence: US)
  Receive Date: 20170324
  Receipt Date: 20170324
  Transmission Date: 20170429
  Serious: Yes (Other)
  Sender: FDA-Public Use
  Company Number: US-009507513-1703USA009307

PATIENT
  Age: 56 Year
  Sex: Female

DRUGS (2)
  1. INTEGRILIN [Suspect]
     Active Substance: EPTIFIBATIDE
     Indication: STENT PLACEMENT
     Dosage: HALF DOSE
  2. INTEGRILIN [Suspect]
     Active Substance: EPTIFIBATIDE
     Indication: ANTICOAGULANT THERAPY

REACTIONS (1)
  - Haemoptysis [Recovered/Resolved]
